FAERS Safety Report 6219655-4 (Version None)
Quarter: 2009Q2

REPORT INFORMATION
  Report Type: 
  Country: None (occurrence: None)
  Receive Date: 20090609
  Receipt Date: 20090601
  Transmission Date: 20091009
  Serious: Yes (Death, Hospitalization, Other)
  Sender: FDA-Public Use
  Company Number: GB-BAYER-200918731GPV

PATIENT
  Age: 87 Year
  Sex: Female

DRUGS (15)
  1. CIPROFLOXACIN [Suspect]
     Indication: URINARY TRACT INFECTION
     Dosage: TOTAL DAILY DOSE: 1000 MG
     Route: 048
     Dates: start: 20050815
  2. LANSOPRAZOLE [Suspect]
     Indication: DRUG USE FOR UNKNOWN INDICATION
     Dosage: TOTAL DAILY DOSE: 60 MG
     Route: 048
     Dates: start: 20050816, end: 20050920
  3. CEFUROXIME [Suspect]
     Indication: PERITONITIS
     Dosage: TOTAL DAILY DOSE: 2250 MG
     Route: 042
     Dates: start: 20050823, end: 20050830
  4. ASPIRIN [Concomitant]
     Indication: DRUG USE FOR UNKNOWN INDICATION
     Dosage: TOTAL DAILY DOSE: 75 MG
     Route: 048
     Dates: start: 20050916, end: 20050920
  5. CITALOPRAM HYDROBROMIDE [Concomitant]
     Indication: DRUG USE FOR UNKNOWN INDICATION
     Dosage: TOTAL DAILY DOSE: 20 MG
     Route: 048
     Dates: start: 20050818, end: 20050822
  6. CO-AMILOFRUSE [Concomitant]
     Indication: DRUG USE FOR UNKNOWN INDICATION
     Route: 065
     Dates: start: 20050816, end: 20050822
  7. ACETAMINOPHEN W/ CODEINE [Concomitant]
     Indication: DRUG USE FOR UNKNOWN INDICATION
     Route: 065
     Dates: start: 20050815, end: 20050817
  8. DILTIAZEM [Concomitant]
     Indication: DRUG USE FOR UNKNOWN INDICATION
     Dosage: TOTAL DAILY DOSE: 120 MG
     Route: 048
     Dates: start: 20050816, end: 20050822
  9. FLUCONAZOLE [Concomitant]
     Indication: DRUG USE FOR UNKNOWN INDICATION
     Dosage: TOTAL DAILY DOSE: 50 MG
     Route: 048
     Dates: start: 20050923, end: 20050923
  10. IPRATROPIUM BROMIDE [Concomitant]
     Indication: DRUG USE FOR UNKNOWN INDICATION
     Dosage: TOTAL DAILY DOSE: 160 ?G
     Route: 055
     Dates: start: 20050907, end: 20050914
  11. ISOSORBIDE MONONITRATE [Concomitant]
     Indication: CORONARY ARTERY DISEASE
     Dosage: TOTAL DAILY DOSE: 60 MG
     Route: 048
     Dates: start: 20050816, end: 20050822
  12. SANDO K [Concomitant]
     Indication: DRUG USE FOR UNKNOWN INDICATION
     Dosage: TOTAL DAILY DOSE: 6 DF
     Route: 048
     Dates: start: 20050830, end: 20050901
  13. SERETIDE [Concomitant]
     Indication: DRUG USE FOR UNKNOWN INDICATION
     Dosage: TOTAL DAILY DOSE: 4 DF
     Route: 055
     Dates: start: 20050816, end: 20050920
  14. SODIUM BICARBONATE [Concomitant]
     Indication: DRUG USE FOR UNKNOWN INDICATION
     Dosage: TOTAL DAILY DOSE: 4 DF
     Route: 065
     Dates: start: 20050816, end: 20050822
  15. SPIRIVA [Concomitant]
     Indication: DRUG USE FOR UNKNOWN INDICATION
     Dosage: TOTAL DAILY DOSE: 18 ?G
     Route: 055
     Dates: start: 20050816, end: 20050910

REACTIONS (8)
  - CLOSTRIDIAL INFECTION [None]
  - CONSTIPATION [None]
  - FLANK PAIN [None]
  - GENERAL PHYSICAL HEALTH DETERIORATION [None]
  - INTESTINAL ISCHAEMIA [None]
  - LOWER RESPIRATORY TRACT INFECTION [None]
  - PERITONITIS [None]
  - URINARY TRACT INFECTION [None]
